FAERS Safety Report 8998445 (Version 4)
Quarter: 2013Q2

REPORT INFORMATION
  Report Type: Spontaneous
  Country: FI (occurrence: FI)
  Receive Date: 20130103
  Receipt Date: 20130410
  Transmission Date: 20140414
  Serious: Yes (Other)
  Sender: FDA-Public Use
  Company Number: FI-PFIZER INC-2013000730

PATIENT
  Age: 54 Year
  Sex: Female

DRUGS (4)
  1. CHAMPIX [Suspect]
     Dosage: 0.5 MG, 2X/DAY
     Dates: start: 20121120, end: 201212
  2. CHAMPIX [Interacting]
     Dosage: 1 MG, 2X/DAY
  3. RIVATRIL [Interacting]
     Dosage: 0.5 MG 2-3 TIMES DAILY
  4. KEPPRA [Interacting]
     Dosage: 500MG, 1,5 X 2

REACTIONS (6)
  - Drug interaction [Unknown]
  - Abasia [Unknown]
  - Limb discomfort [Unknown]
  - Speech disorder [Unknown]
  - Fall [Unknown]
  - Drug ineffective [Unknown]
